FAERS Safety Report 23577947 (Version 1)
Quarter: 2024Q1

REPORT INFORMATION
  Report Type: Spontaneous
  Country: US (occurrence: US)
  Receive Date: 20240228
  Receipt Date: 20240228
  Transmission Date: 20240410
  Serious: Yes (Hospitalization, Other)
  Sender: FDA-Public Use
  Company Number: US-NOVOPROD-1181027

PATIENT
  Sex: Male

DRUGS (1)
  1. OZEMPIC [Suspect]
     Active Substance: SEMAGLUTIDE
     Indication: Diabetes mellitus
     Dosage: 0.25 MG, QW
     Route: 058
     Dates: start: 202305, end: 202308

REACTIONS (5)
  - Intestinal obstruction [Unknown]
  - Enterocolitis [Unknown]
  - Enterocolitis [Unknown]
  - Small intestinal obstruction [Unknown]
  - Ileus [Unknown]

NARRATIVE: CASE EVENT DATE: 20230601
